FAERS Safety Report 7778714-5 (Version None)
Quarter: 2011Q3

REPORT INFORMATION
  Report Type: 
  Country: None (occurrence: None)
  Receive Date: 20110926
  Receipt Date: 20110913
  Transmission Date: 20111222
  Serious: Yes (Other)
  Sender: FDA-Public Use
  Company Number: US-JNJFOC-20110908007

PATIENT
  Age: 3 Week
  Sex: Male
  Weight: 4.08 kg

DRUGS (1)
  1. DESITIN MAXIMUM STRENGTH ORIGINAL PASTE [Suspect]
     Indication: DERMATITIS DIAPER
     Route: 061
     Dates: start: 20110911, end: 20110912

REACTIONS (3)
  - APPLICATION SITE EXFOLIATION [None]
  - APPLICATION SITE BLEEDING [None]
  - APPLICATION SITE EROSION [None]
